FAERS Safety Report 5986828-5 (Version None)
Quarter: 2008Q4

REPORT INFORMATION
  Report Type: 
  Country: None (occurrence: None)
  Receive Date: 20081209
  Receipt Date: 20080904
  Transmission Date: 20090506
  Serious: No
  Sender: FDA-Public Use
  Company Number: US-AMGEN-KDL305896

PATIENT
  Sex: Male

DRUGS (2)
  1. ENBREL [Suspect]
     Indication: PSORIATIC ARTHROPATHY
     Route: 058
     Dates: start: 20080725
  2. ENBREL [Suspect]
     Indication: PSORIASIS

REACTIONS (5)
  - BRONCHITIS [None]
  - CHEST PAIN [None]
  - FATIGUE [None]
  - PRODUCTIVE COUGH [None]
  - UPPER RESPIRATORY TRACT CONGESTION [None]
